FAERS Safety Report 9911508 (Version 2)
Quarter: 2014Q1

REPORT INFORMATION
  Report Type: Spontaneous
  Country: NL (occurrence: NL)
  Receive Date: 20140219
  Receipt Date: 20140303
  Transmission Date: 20141002
  Serious: Yes (Other)
  Sender: FDA-Public Use
  Company Number: PHHY2014NL019747

PATIENT
  Sex: Female

DRUGS (2)
  1. GILENYA [Suspect]
     Dosage: UNK
     Route: 048
     Dates: start: 20131018
  2. FLUOXETINE [Concomitant]

REACTIONS (1)
  - Retinal vein thrombosis [Not Recovered/Not Resolved]
